FAERS Safety Report 5578673-X (Version None)
Quarter: 2008Q1

REPORT INFORMATION
  Report Type: 
  Country: None (occurrence: None)
  Receive Date: 20080102
  Receipt Date: 20071221
  Transmission Date: 20080703
  Serious: Yes (Hospitalization)
  Sender: FDA-Public Use
  Company Number: CH-JNJFOC-20071205282

PATIENT
  Age: 77 Year
  Sex: Female
  Weight: 79 kg

DRUGS (7)
  1. FENTANYL [Suspect]
     Indication: PAIN
     Route: 062
  2. LYRICA [Suspect]
     Indication: DRUG USE FOR UNKNOWN INDICATION
     Route: 048
  3. KARDEGIC [Concomitant]
     Indication: DRUG USE FOR UNKNOWN INDICATION
     Route: 048
  4. ZESTRIL [Concomitant]
     Indication: DRUG USE FOR UNKNOWN INDICATION
     Route: 048
  5. OEDEMEX [Concomitant]
     Indication: OEDEMA
     Route: 048
  6. INSULIN [Concomitant]
     Indication: TYPE 1 DIABETES MELLITUS
     Route: 058
  7. SORTIS [Concomitant]
     Indication: DRUG USE FOR UNKNOWN INDICATION
     Route: 048

REACTIONS (9)
  - ASTHENIA [None]
  - BALANCE DISORDER [None]
  - CONFUSIONAL STATE [None]
  - DIPLOPIA [None]
  - DYSKINESIA [None]
  - HYPERTENSION [None]
  - MYOCLONUS [None]
  - RENAL FAILURE ACUTE [None]
  - TREMOR [None]
